FAERS Safety Report 5093548-0 (Version None)
Quarter: 2006Q3

REPORT INFORMATION
  Report Type: 
  Country: None (occurrence: None)
  Receive Date: 20060829
  Receipt Date: 20060816
  Transmission Date: 20061208
  Serious: Yes (Other)
  Sender: FDA-Public Use
  Company Number: 2006099962

PATIENT
  Age: 57 Year
  Sex: Female
  Weight: 61.2356 kg

DRUGS (13)
  1. LYRICA [Suspect]
     Indication: MUSCULOSKELETAL PAIN
     Dosage: 300 MG (150 MG,2 IN 1 D)
  2. LYRICA [Suspect]
     Indication: NECK PAIN
     Dosage: 300 MG (150 MG,2 IN 1 D)
  3. VERSED [Suspect]
     Indication: DRUG USE FOR UNKNOWN INDICATION
  4. PREVACID [Concomitant]
  5. TRAZODONE HCL [Concomitant]
  6. VISTARIL (HYDROXYZINE EMBONATE) [Concomitant]
  7. LAXATIVES [Concomitant]
  8. CLONAZEPAM [Concomitant]
  9. NORFLEX [Concomitant]
  10. ACETYLSALICYLIC ACID [Concomitant]
  11. ACIDOPHILUS (LACTOBACILLUS ACIDOPHILUS) [Concomitant]
  12. HYDROCHLOROTHIAZIDE [Concomitant]
  13. TOPROL-XL [Concomitant]

REACTIONS (4)
  - AORTIC DISORDER [None]
  - CARDIAC DISORDER [None]
  - CORONARY ARTERY OCCLUSION [None]
  - DYSPNOEA [None]
